FAERS Safety Report 12314705 (Version 3)
Quarter: 2016Q4

REPORT INFORMATION
  Report Type: Report from Study
  Country: NL (occurrence: NL)
  Receive Date: 20160428
  Receipt Date: 20161007
  Transmission Date: 20170207
  Serious: Yes (Death, Life-Threatening, Hospitalization)
  Sender: FDA-Public Use
  Company Number: NL-JNJFOC-20151011193

PATIENT
  Age: 60 Year
  Sex: Female
  Weight: 96 kg

DRUGS (4)
  1. PLACEBO [Suspect]
     Active Substance: UNSPECIFIED INGREDIENT
     Indication: TYPE 2 DIABETES MELLITUS
     Route: 048
     Dates: end: 20160121
  2. BLINDED; CANAGLIFLOZIN [Suspect]
     Active Substance: CANAGLIFLOZIN
     Indication: TYPE 2 DIABETES MELLITUS
     Route: 048
     Dates: end: 20160121
  3. BLINDED; CANAGLIFLOZIN [Suspect]
     Active Substance: CANAGLIFLOZIN
     Indication: TYPE 2 DIABETES MELLITUS
     Route: 048
     Dates: start: 20140515, end: 20151009
  4. PLACEBO [Suspect]
     Active Substance: UNSPECIFIED INGREDIENT
     Indication: TYPE 2 DIABETES MELLITUS
     Route: 048
     Dates: start: 20140515, end: 20151009

REACTIONS (6)
  - Amputation [Recovered/Resolved with Sequelae]
  - Diabetic foot infection [Recovered/Resolved]
  - Respiratory failure [Recovered/Resolved]
  - Decubitus ulcer [Fatal]
  - Diabetic foot [Recovered/Resolved with Sequelae]
  - Wound sepsis [Fatal]

NARRATIVE: CASE EVENT DATE: 20151009
